FAERS Safety Report 6980537-1 (Version None)
Quarter: 2010Q3

REPORT INFORMATION
  Report Type: 
  Country: None (occurrence: None)
  Receive Date: 20100914
  Receipt Date: 20100907
  Transmission Date: 20110219
  Serious: Yes (Death, Other)
  Sender: FDA-Public Use
  Company Number: PHHY2010ES59757

PATIENT
  Age: 8 Year
  Sex: Male

DRUGS (3)
  1. CYCLOSPORINE [Suspect]
     Indication: CORD BLOOD TRANSPLANT THERAPY
  2. MYCOPHENOLATE MOFETIL [Suspect]
  3. CORTICOSTEROIDS [Suspect]

REACTIONS (3)
  - ACUTE GRAFT VERSUS HOST DISEASE [None]
  - MYCOBACTERIAL INFECTION [None]
  - MYCOBACTERIUM TUBERCULOSIS COMPLEX TEST POSITIVE [None]
